FAERS Safety Report 16706255 (Version 4)
Quarter: 2020Q4

REPORT INFORMATION
  Report Type: Spontaneous
  Country: US (occurrence: US)
  Receive Date: 20190815
  Receipt Date: 20201013
  Transmission Date: 20210113
  Serious: Yes (Other)
  Sender: FDA-Public Use
  Company Number: US-PFIZER INC-2019347998

PATIENT
  Age: 62 Year
  Sex: Male
  Weight: 61.23 kg

DRUGS (8)
  1. MORPHINE SULFATE. [Concomitant]
     Active Substance: MORPHINE SULFATE
     Dosage: UNK, AT NIGHT TIME
  2. VIAGRA [Suspect]
     Active Substance: SILDENAFIL CITRATE
     Dosage: 100 MG, ONCE A WEEK
     Dates: start: 20190101
  3. OXYCODONE [Concomitant]
     Active Substance: OXYCODONE
     Indication: SPINAL CORD INJURY
  4. DIAZEPAM. [Concomitant]
     Active Substance: DIAZEPAM
     Indication: ANXIETY
  5. VIAGRA [Suspect]
     Active Substance: SILDENAFIL CITRATE
     Indication: ERECTILE DYSFUNCTION
     Dosage: 100 MG, AS NEEDED
     Route: 048
     Dates: start: 2018
  6. VIAGRA [Suspect]
     Active Substance: SILDENAFIL CITRATE
     Dosage: 20 MG, ONCE A DAY
     Dates: start: 20190101
  7. OXYCODONE [Concomitant]
     Active Substance: OXYCODONE
     Indication: BACK INJURY
     Dosage: 30 MG, 5 TIMES A DAY
  8. DIAZEPAM. [Concomitant]
     Active Substance: DIAZEPAM
     Indication: DEPRESSION
     Dosage: 10 MG, UNK

REACTIONS (3)
  - Weight decreased [Recovered/Resolved]
  - Neoplasm malignant [Unknown]
  - Therapeutic product effect incomplete [Unknown]

NARRATIVE: CASE EVENT DATE: 20190101
